FAERS Safety Report 6415627-5 (Version None)
Quarter: 2009Q4

REPORT INFORMATION
  Report Type: 
  Country: None (occurrence: None)
  Receive Date: 20091027
  Receipt Date: 20091014
  Transmission Date: 20100525
  Serious: No
  Sender: FDA-Public Use
  Company Number: CO-ROCHE-662824

PATIENT
  Sex: Female
  Weight: 57 kg

DRUGS (2)
  1. ISOTRETINOIN [Suspect]
     Indication: ACNE
     Dosage: MANUFACTURER: UNKNOWN. DRUG NAME REPORTED: ISOTRETINOINE. DOSAGE: 20 MG QD.
     Route: 048
     Dates: start: 20090501, end: 20091013
  2. NORDETTE-28 [Concomitant]
     Indication: CONTRACEPTION
     Dosage: DRUG NAME: MYCROGYNON. MANUFACTURER: BAYER.
     Route: 048

REACTIONS (2)
  - NO ADVERSE EVENT [None]
  - PREGNANCY [None]
